FAERS Safety Report 7962201-5 (Version None)
Quarter: 2011Q4

REPORT INFORMATION
  Report Type: 
  Country: None (occurrence: None)
  Receive Date: 20111207
  Receipt Date: 20111129
  Transmission Date: 20120403
  Serious: Yes (Other)
  Sender: FDA-Public Use
  Company Number: PHHY2011CN104774

PATIENT
  Age: 37 Year
  Sex: Male

DRUGS (1)
  1. TASIGNA [Suspect]
     Indication: CHRONIC MYELOID LEUKAEMIA
     Dosage: 800 MG DAILY
     Route: 048
     Dates: start: 20111122

REACTIONS (4)
  - BLOOD BILIRUBIN UNCONJUGATED INCREASED [None]
  - RASH [None]
  - HAEMOLYSIS [None]
  - HYPERBILIRUBINAEMIA [None]
